FAERS Safety Report 4672663-7 (Version None)
Quarter: 2005Q2

REPORT INFORMATION
  Report Type: 
  Country: None (occurrence: None)
  Receive Date: 20050524
  Receipt Date: 20050303
  Transmission Date: 20051028
  Serious: Yes (Hospitalization, Other)
  Sender: FDA-Public Use
  Company Number: US-MERCK-0503USA00856

PATIENT
  Age: 45 Year
  Sex: Female
  Weight: 89 kg

DRUGS (13)
  1. VIOXX [Suspect]
     Indication: ARTHRITIS
     Route: 048
     Dates: start: 20010101, end: 20040101
  2. VIOXX [Suspect]
     Route: 048
     Dates: start: 20010101, end: 20040101
  3. DIOVAN [Concomitant]
     Indication: HYPERTENSION
     Route: 065
     Dates: start: 19970101
  4. ZOLOFT [Concomitant]
     Indication: DEPRESSION
     Route: 065
     Dates: start: 19990101
  5. TEGRETOL [Concomitant]
     Indication: SCHIZOPHRENIA
     Route: 065
     Dates: start: 19730101
  6. TEGRETOL [Concomitant]
     Indication: CONVULSION
     Route: 065
     Dates: start: 19730101
  7. ROBAXIN [Concomitant]
     Indication: MUSCLE RELAXANT THERAPY
     Route: 065
  8. NEURONTIN [Concomitant]
     Indication: CONVULSION
     Route: 065
  9. SEROQUEL [Concomitant]
     Indication: MENTAL DISORDER
     Route: 065
  10. REGLAN [Concomitant]
     Indication: GASTROOESOPHAGEAL REFLUX DISEASE
     Route: 065
  11. CELEBREX [Concomitant]
     Route: 065
     Dates: start: 20010901, end: 20020401
  12. CELEBREX [Concomitant]
     Route: 065
     Dates: start: 20041101
  13. PREVACID [Concomitant]
     Route: 065
     Dates: start: 20000101

REACTIONS (6)
  - ADVERSE EVENT [None]
  - CEREBROVASCULAR ACCIDENT [None]
  - EMOTIONAL DISTRESS [None]
  - INJURY [None]
  - SPINA BIFIDA [None]
  - WHEELCHAIR USER [None]
